FAERS Safety Report 13312329 (Version 1)
Quarter: 2017Q1

REPORT INFORMATION
  Report Type: Report from Study
  Country: CO (occurrence: CO)
  Receive Date: 20170309
  Receipt Date: 20170309
  Transmission Date: 20170428
  Serious: Yes (Hospitalization)
  Sender: FDA-Public Use
  Company Number: CO-SHIRE-CO201704620

PATIENT
  Age: 15 Year
  Sex: Female
  Weight: 48 kg

DRUGS (2)
  1. C1 INHIBITOR (HUMAN) [Suspect]
     Active Substance: HUMAN C1-ESTERASE INHIBITOR
     Indication: PROPHYLAXIS
  2. C1 INHIBITOR (HUMAN) [Suspect]
     Active Substance: HUMAN C1-ESTERASE INHIBITOR
     Indication: HEREDITARY ANGIOEDEMA
     Dosage: 1000 UNITS (2 VIALS), OTHER (TWO TIMES PER WEEK)
     Route: 042
     Dates: start: 201508

REACTIONS (3)
  - Catheter site infection [Not Recovered/Not Resolved]
  - Catheter site inflammation [Not Recovered/Not Resolved]
  - Catheter site pain [Not Recovered/Not Resolved]

NARRATIVE: CASE EVENT DATE: 201702
